FAERS Safety Report 8069724-1 (Version None)
Quarter: 2012Q1

REPORT INFORMATION
  Report Type: 
  Country: None (occurrence: None)
  Receive Date: 20120125
  Receipt Date: 20110912
  Transmission Date: 20120608
  Serious: No
  Sender: FDA-Public Use
  Company Number: US-PFIZER INC-2011US-49837

PATIENT
  Sex: Male

DRUGS (1)
  1. VERAPAMIL HCL [Suspect]
     Dosage: 120 MG, UNK
     Route: 065

REACTIONS (5)
  - CHEST PAIN [None]
  - FEELING ABNORMAL [None]
  - FEELING JITTERY [None]
  - UNEVALUABLE EVENT [None]
  - BLOOD PRESSURE INCREASED [None]
